FAERS Safety Report 7102167-3 (Version None)
Quarter: 2010Q4

REPORT INFORMATION
  Report Type: 
  Country: None (occurrence: None)
  Receive Date: 20101115
  Receipt Date: 20090618
  Transmission Date: 20110411
  Serious: No
  Sender: FDA-Public Use
  Company Number: US-BIOGENIDEC-2009BI018853

PATIENT
  Age: 38 Year
  Sex: Female

DRUGS (1)
  1. TYSABRI [Suspect]
     Indication: MULTIPLE SCLEROSIS
     Route: 042
     Dates: start: 20090417

REACTIONS (6)
  - ABDOMINAL PAIN UPPER [None]
  - DEPRESSED MOOD [None]
  - DEPRESSION [None]
  - HEADACHE [None]
  - MUSCULAR WEAKNESS [None]
  - SLEEP DISORDER [None]
